FAERS Safety Report 5930401-1 (Version None)
Quarter: 2008Q4

REPORT INFORMATION
  Report Type: 
  Country: None (occurrence: None)
  Receive Date: 20081021
  Receipt Date: 20081009
  Transmission Date: 20090506
  Serious: Yes (Life-Threatening, Hospitalization)
  Sender: FDA-Public Use
  Company Number: 20085556

PATIENT

DRUGS (1)
  1. LIORESAL [Suspect]
     Indication: MUSCLE SPASTICITY
     Dosage: DAILY, INTRATHECAL
     Route: 037

REACTIONS (6)
  - ASTHENIA [None]
  - COGNITIVE DISORDER [None]
  - HYPOTONIA [None]
  - OVERDOSE [None]
  - RESPIRATORY DISORDER [None]
  - SOMNOLENCE [None]
